FAERS Safety Report 10733155 (Version 1)
Quarter: 2015Q1

REPORT INFORMATION
  Report Type: Spontaneous
  Country: NO (occurrence: NO)
  Receive Date: 20150123
  Receipt Date: 20150123
  Transmission Date: 20150721
  Serious: Yes (Hospitalization)
  Sender: FDA-Public Use
  Company Number: PHHY2015NO006791

PATIENT
  Age: 43 Year
  Sex: Male

DRUGS (6)
  1. LORATADINE. [Suspect]
     Active Substance: LORATADINE
     Indication: PRODUCT USED FOR UNKNOWN INDICATION
     Route: 048
     Dates: start: 20141011, end: 20141016
  2. QUETIAPINE [Suspect]
     Active Substance: QUETIAPINE
     Indication: PRODUCT USED FOR UNKNOWN INDICATION
     Route: 048
     Dates: start: 20141011, end: 20141016
  3. RIVOTRIL [Suspect]
     Active Substance: CLONAZEPAM
     Indication: PRODUCT USED FOR UNKNOWN INDICATION
     Route: 048
     Dates: start: 20141011, end: 20141016
  4. NEURONTIN [Suspect]
     Active Substance: GABAPENTIN
     Indication: PRODUCT USED FOR UNKNOWN INDICATION
     Route: 048
     Dates: start: 20141011, end: 20141016
  5. LAMICTAL [Suspect]
     Active Substance: LAMOTRIGINE
     Indication: PRODUCT USED FOR UNKNOWN INDICATION
     Dosage: 200 MG, TID
     Route: 048
     Dates: start: 20141011, end: 20141016
  6. WELLBUTRIN SR [Suspect]
     Active Substance: BUPROPION HYDROCHLORIDE
     Indication: PRODUCT USED FOR UNKNOWN INDICATION
     Route: 048
     Dates: start: 20141011, end: 20141016

REACTIONS (6)
  - Fatigue [Unknown]
  - Dysarthria [Unknown]
  - Walking disability [Unknown]
  - Dizziness [Unknown]
  - Wrong drug administered [Recovered/Resolved]
  - Intercepted medication error [Recovered/Resolved]

NARRATIVE: CASE EVENT DATE: 20141011
